FAERS Safety Report 10269780 (Version 2)
Quarter: 2014Q3

REPORT INFORMATION
  Report Type: Spontaneous
  Country: IT (occurrence: None)
  Receive Date: 20140625
  Receipt Date: 20140829
  Transmission Date: 20150326
  Serious: Yes (Hospitalization)
  Sender: FDA-Public Use
  Company Number: 2014AP003448

PATIENT
  Age: 50 Year
  Sex: Female

DRUGS (4)
  1. GAVISCON [Suspect]
     Active Substance: ALUMINUM HYDROXIDE\MAGNESIUM CARBONATE
     Indication: PRODUCT USED FOR UNKNOWN INDICATION
     Route: 048
  2. PANTOPRAZOLE [Suspect]
     Active Substance: PANTOPRAZOLE SODIUM
     Indication: PRODUCT USED FOR UNKNOWN INDICATION
  3. GLUCOPHAGE [Concomitant]
     Active Substance: METFORMIN HYDROCHLORIDE
  4. TOTALIP (ATORVASTATIN CALCIUM) [Concomitant]

REACTIONS (3)
  - Erythema [None]
  - Pruritus [None]
  - Dyspnoea [None]

NARRATIVE: CASE EVENT DATE: 20140427
